FAERS Safety Report 15312620 (Version 1)
Quarter: 2018Q3

REPORT INFORMATION
  Report Type: Spontaneous
  Country: KR (occurrence: KR)
  Receive Date: 20180823
  Receipt Date: 20180823
  Transmission Date: 20181010
  Serious: Yes (Other)
  Sender: FDA-Public Use
  Company Number: KR-009507513-1503KOR004148

PATIENT
  Age: 67 Year
  Sex: Male
  Weight: 50 kg

DRUGS (26)
  1. ROCURONIUM BROMIDE. [Suspect]
     Active Substance: ROCURONIUM BROMIDE
     Indication: NEUROMUSCULAR BLOCKADE
     Dosage: 40 MG, ONCE
     Route: 042
     Dates: start: 20150224, end: 20150224
  2. FENTANYL CITRATE. [Concomitant]
     Active Substance: FENTANYL CITRATE
     Indication: PAIN PROPHYLAXIS
     Dosage: 100 MICROGRAM, BID
     Route: 008
     Dates: start: 20150224, end: 20150224
  3. CODENING TAB [Concomitant]
     Indication: PROPHYLAXIS
     Dosage: 1 TABLET, BID
     Route: 048
     Dates: start: 20150222, end: 20150226
  4. SPIRIVA [Concomitant]
     Active Substance: TIOTROPIUM BROMIDE MONOHYDRATE
     Indication: CHRONIC OBSTRUCTIVE PULMONARY DISEASE
     Dosage: 1 TIME, QD
     Route: 055
     Dates: start: 20150223, end: 20150302
  5. XEROVA [Concomitant]
     Indication: PROPHYLAXIS
     Dosage: 1 TIME, ONCE, ORAL CAVITY
     Route: 002
     Dates: start: 20150224, end: 20150224
  6. ACUPAN [Concomitant]
     Active Substance: NEFOPAM HYDROCHLORIDE
     Indication: PAIN PROPHYLAXIS
     Dosage: 200 MG, CONTINUOUS INFUSION
     Route: 041
     Dates: start: 20150224, end: 20150228
  7. HEXAMEDIN [Concomitant]
     Indication: PROPHYLAXIS
     Dosage: 1 DF, ONCE, ROUTE: GARGLE
     Route: 002
     Dates: start: 20150223, end: 20150223
  8. FENTANYL CITRATE. [Concomitant]
     Active Substance: FENTANYL CITRATE
     Dosage: 1500 MICROGRAM, INFUSION
     Route: 042
     Dates: start: 20150224, end: 20150228
  9. ALOXI [Concomitant]
     Active Substance: PALONOSETRON HYDROCHLORIDE
     Indication: PROPHYLAXIS OF NAUSEA AND VOMITING
     Dosage: 75 MICROGRAM, ONCE
     Route: 042
     Dates: start: 20150224
  10. SYNATURA [Concomitant]
     Indication: PROPHYLAXIS
     Dosage: 15 ML, BID
     Route: 048
     Dates: start: 20150222, end: 20150226
  11. ZIBOR [Concomitant]
     Indication: ANTICOAGULANT THERAPY
     Dosage: 2500 IU,QD
     Route: 058
     Dates: start: 20150225, end: 20150302
  12. MUCOMYST [Concomitant]
     Active Substance: ACETYLCYSTEINE
     Indication: CHRONIC OBSTRUCTIVE PULMONARY DISEASE
     Dosage: 1 TIME, SIX TIMES A DAY
     Route: 055
     Dates: start: 20150226, end: 20150302
  13. DENOGAN [Concomitant]
     Active Substance: PROPACETAMOL HYDROCHLORIDE
     Indication: PAIN PROPHYLAXIS
     Dosage: 2 G, BID
     Route: 008
     Dates: start: 20150224, end: 20150224
  14. AMBROXOL ACEFYLLINATE [Concomitant]
     Active Substance: AMBROXOL ACEFYLLINATE
     Indication: CHRONIC OBSTRUCTIVE PULMONARY DISEASE
     Dosage: 100 MG, BID
     Route: 048
     Dates: start: 20150222
  15. PULMICORT TURBUHALER [Concomitant]
     Active Substance: BUDESONIDE
     Indication: CHRONIC OBSTRUCTIVE PULMONARY DISEASE
     Dosage: 1 TIME, QID
     Route: 055
     Dates: start: 20150222, end: 20150303
  16. NASEA [Concomitant]
     Active Substance: RAMOSETRON HYDROCHLORIDE
     Indication: PROPHYLAXIS OF NAUSEA AND VOMITING
     Dosage: 0.6 MG, INFUSION
     Route: 041
     Dates: start: 20150224, end: 20150228
  17. URSA TABLETS [Concomitant]
     Indication: PROPHYLAXIS
     Dosage: 200 MG, BID
     Route: 048
     Dates: start: 20150222, end: 20150223
  18. ATOCK [Concomitant]
     Active Substance: FORMOTEROL FUMARATE
     Indication: PROPHYLAXIS
     Dosage: 40 MICROGRAM, BID
     Route: 048
     Dates: start: 20150222
  19. ULTRACET [Concomitant]
     Active Substance: ACETAMINOPHEN\TRAMADOL HYDROCHLORIDE
     Indication: PAIN PROPHYLAXIS
     Dosage: 1 TABLET, QD
     Route: 048
     Dates: start: 20150226
  20. BRIDION [Suspect]
     Active Substance: SUGAMMADEX
     Indication: NEUROMUSCULAR BLOCKADE REVERSAL
     Dosage: 2MG/KG, 100 MG, ONCE
     Route: 042
     Dates: start: 20150224, end: 20150224
  21. ROCURONIUM BROMIDE. [Suspect]
     Active Substance: ROCURONIUM BROMIDE
     Dosage: 95 MG, CONTINIOUS INFUSION UNTIL END OF SURGERY
     Route: 042
     Dates: start: 20150224, end: 20150224
  22. CEFAZOLIN [Concomitant]
     Active Substance: CEFAZOLIN
     Indication: ANTIBIOTIC PROPHYLAXIS
     Dosage: 1 G, BID
     Route: 042
     Dates: start: 20150224, end: 20150224
  23. AVENTRO [Concomitant]
     Indication: CHRONIC OBSTRUCTIVE PULMONARY DISEASE
     Dosage: 1 TIME, QID
     Route: 055
     Dates: start: 20150222, end: 20150303
  24. VENTOLIN [Concomitant]
     Active Substance: ALBUTEROL SULFATE
     Indication: CHRONIC OBSTRUCTIVE PULMONARY DISEASE
     Dosage: 1 TIME, QID
     Route: 055
     Dates: start: 20150222, end: 20150226
  25. HALCION [Concomitant]
     Active Substance: TRIAZOLAM
     Indication: PROPHYLAXIS
     Dosage: 0.125MG, ONCE
     Route: 048
     Dates: start: 20150224, end: 20150224
  26. AMINOPHYLLINE. [Concomitant]
     Active Substance: AMINOPHYLLINE
     Indication: CHRONIC OBSTRUCTIVE PULMONARY DISEASE
     Dosage: 20 ML, QD
     Route: 042
     Dates: start: 20150226, end: 20150302

REACTIONS (4)
  - Urinary retention [Recovered/Resolved]
  - Ileus [Recovered/Resolved]
  - Dyspnoea [Recovered/Resolved]
  - Oxygen saturation decreased [Recovered/Resolved]

NARRATIVE: CASE EVENT DATE: 20150226
